FAERS Safety Report 24234102 (Version 1)
Quarter: 2024Q3

REPORT INFORMATION
  Report Type: Spontaneous
  Country: FR (occurrence: FR)
  Receive Date: 20240821
  Receipt Date: 20240821
  Transmission Date: 20241017
  Serious: Yes (Other)
  Sender: LUNDBECK
  Company Number: None

PATIENT

DRUGS (4)
  1. CLOBAZAM [Suspect]
     Active Substance: CLOBAZAM
     Indication: Epilepsy
     Dosage: 20 MG, QD
     Route: 048
     Dates: start: 20230629, end: 20230724
  2. LAMOTRIGINE [Suspect]
     Active Substance: LAMOTRIGINE
     Indication: Epilepsy
     Dosage: 150 MG, QD
     Route: 048
     Dates: end: 20230724
  3. LACOSAMIDE [Suspect]
     Active Substance: LACOSAMIDE
     Indication: Epilepsy
     Dosage: 500 MG, QD
     Route: 048
     Dates: end: 20230629
  4. LEVETIRACETAM [Suspect]
     Active Substance: LEVETIRACETAM
     Indication: Epilepsy
     Dosage: 1500 MG, QD
     Route: 048
     Dates: start: 20230629, end: 20230724

REACTIONS (2)
  - Abortion induced [Recovered/Resolved]
  - Maternal exposure during pregnancy [Unknown]
